FAERS Safety Report 18480399 (Version 1)
Quarter: 2020Q4

REPORT INFORMATION
  Report Type: Spontaneous
  Country: IE (occurrence: IE)
  Receive Date: 20201109
  Receipt Date: 20201109
  Transmission Date: 20210114
  Serious: Yes (Hospitalization)
  Sender: FDA-Public Use
  Company Number: IE-LUPIN PHARMACEUTICALS INC.-2020-08397

PATIENT
  Age: 73 Year
  Sex: Male

DRUGS (8)
  1. ARIPIPRAZOLE. [Suspect]
     Active Substance: ARIPIPRAZOLE
     Indication: MAJOR DEPRESSION
     Route: 065
  2. RIVASTIGMINE. [Suspect]
     Active Substance: RIVASTIGMINE
     Indication: PARKINSONISM
     Dosage: UNK
     Route: 065
  3. HALOPERIDOL. [Suspect]
     Active Substance: HALOPERIDOL
     Indication: MAJOR DEPRESSION
     Dosage: UNK
     Route: 065
  4. MIRTAZAPINE. [Suspect]
     Active Substance: MIRTAZAPINE
     Indication: DEPRESSION
     Dosage: 30 MILLIGRAM, QD
     Route: 065
  5. SERTRALINE [Suspect]
     Active Substance: SERTRALINE HYDROCHLORIDE
     Indication: MAJOR DEPRESSION
     Dosage: 25 MILLIGRAM
     Route: 065
  6. ARIPIPRAZOLE. [Suspect]
     Active Substance: ARIPIPRAZOLE
     Indication: PSYCHOTIC SYMPTOM
  7. AGOMELATINE [Suspect]
     Active Substance: AGOMELATINE
     Indication: DEPRESSION
     Dosage: UNK, QD (TITRATED TO 50 MG)
     Route: 065
  8. HALOPERIDOL. [Suspect]
     Active Substance: HALOPERIDOL
     Indication: PSYCHOTIC SYMPTOM

REACTIONS (3)
  - Therapeutic product effect incomplete [Unknown]
  - Drug intolerance [Unknown]
  - Parkinsonism [Recovering/Resolving]
